FAERS Safety Report 17138701 (Version 1)
Quarter: 2019Q4

REPORT INFORMATION
  Report Type: Spontaneous
  Country: US (occurrence: US)
  Receive Date: 20191211
  Receipt Date: 20191211
  Transmission Date: 20200122
  Serious: No
  Sender: FDA-Public Use
  Company Number: US-UCBSA-2016018861

PATIENT
  Sex: Female

DRUGS (11)
  1. VIMPAT [Suspect]
     Active Substance: LACOSAMIDE
     Dosage: UNK
     Dates: start: 20131122, end: 20131126
  2. OXCARBAZEPINE. [Concomitant]
     Active Substance: OXCARBAZEPINE
     Indication: SEIZURE
  3. TOPIRAMATE. [Concomitant]
     Active Substance: TOPIRAMATE
     Indication: SEIZURE
  4. DIAMOX SEQUELS [Concomitant]
     Active Substance: ACETAZOLAMIDE
     Indication: SEIZURE
  5. ETHOSUXIMIDE. [Concomitant]
     Active Substance: ETHOSUXIMIDE
     Indication: SEIZURE
  6. BANZEL [Concomitant]
     Active Substance: RUFINAMIDE
     Indication: SEIZURE
     Dosage: UNK
     Dates: end: 201309
  7. VIMPAT [Suspect]
     Active Substance: LACOSAMIDE
     Indication: SEIZURE
     Dosage: UNK
     Dates: end: 201309
  8. CARBAMAZEPINE. [Concomitant]
     Active Substance: CARBAMAZEPINE
     Indication: SEIZURE
  9. PERAMPANEL [Concomitant]
     Active Substance: PERAMPANEL
     Indication: SEIZURE
     Dosage: UNK
     Dates: end: 20140514
  10. LAMOTRIGINE. [Concomitant]
     Active Substance: LAMOTRIGINE
     Indication: SEIZURE
  11. OXCARBAZEPINE. [Concomitant]
     Active Substance: OXCARBAZEPINE
     Indication: SEIZURE

REACTIONS (5)
  - Asthenia [Unknown]
  - Dizziness [Unknown]
  - Headache [Unknown]
  - Off label use [Unknown]
  - Tearfulness [Unknown]
